FAERS Safety Report 10994912 (Version 1)
Quarter: 2015Q2

REPORT INFORMATION
  Report Type: Spontaneous
  Country: US (occurrence: US)
  Receive Date: 20150407
  Receipt Date: 20150407
  Transmission Date: 20150821
  Serious: Yes (Other)
  Sender: FDA-Public Use
  Company Number: US-ASTRAZENECA-2015SE31516

PATIENT
  Age: 80 Year
  Sex: Female

DRUGS (2)
  1. CRESTOR [Suspect]
     Active Substance: ROSUVASTATIN CALCIUM
     Indication: BLOOD CHOLESTEROL INCREASED
     Route: 048
     Dates: end: 201503
  2. ZETIA [Concomitant]
     Active Substance: EZETIMIBE
     Dates: end: 201503

REACTIONS (2)
  - Cerebrovascular accident [Unknown]
  - Fatigue [Unknown]

NARRATIVE: CASE EVENT DATE: 201503
